FAERS Safety Report 25740429 (Version 1)
Quarter: 2025Q3

REPORT INFORMATION
  Report Type: Spontaneous
  Country: US (occurrence: None)
  Receive Date: 20250828
  Receipt Date: 20250828
  Transmission Date: 20251020
  Serious: Yes (Hospitalization)
  Sender: FDA-CTU
  Company Number: None

PATIENT
  Age: 57 Year
  Sex: Female
  Weight: 72 kg

DRUGS (1)
  1. WEGOVY [Suspect]
     Active Substance: SEMAGLUTIDE
     Indication: Type 2 diabetes mellitus
     Dates: end: 20250801

REACTIONS (6)
  - Treatment noncompliance [None]
  - Vision blurred [None]
  - Vitreous floaters [None]
  - Aphasia [None]
  - Hemiparesis [None]
  - Facial paralysis [None]

NARRATIVE: CASE EVENT DATE: 20250801
